FAERS Safety Report 4290737-X (Version None)
Quarter: 2004Q1

REPORT INFORMATION
  Report Type: 
  Country: None (occurrence: None)
  Receive Date: 20040209
  Receipt Date: 20040127
  Transmission Date: 20041129
  Serious: Yes (Other)
  Sender: FDA-Public Use
  Company Number: 2003125131

PATIENT
  Age: 37 Year
  Sex: Male

DRUGS (4)
  1. VFEND [Suspect]
     Indication: ASPERGILLOSIS
     Dosage: 200 MG BID, INTRAVENOUS
     Route: 042
     Dates: start: 20031030
  2. MYCOPHENOLATE MOFETIL (MYCOPHENOLATE MOFETIL) [Concomitant]
  3. FOSCARNET SODIUM [Concomitant]
  4. OMEPRAZOLE [Concomitant]

REACTIONS (3)
  - BK VIRUS INFECTION [None]
  - HAEMATURIA [None]
  - RENAL CYST [None]
